FAERS Safety Report 5151309-8 (Version None)
Quarter: 2006Q4

REPORT INFORMATION
  Report Type: 
  Country: None (occurrence: None)
  Receive Date: 20061115
  Receipt Date: 20061108
  Transmission Date: 20070319
  Serious: Yes (Other)
  Sender: FDA-Public Use
  Company Number: US-GLAXOSMITHKLINE-A0627342A

PATIENT
  Age: 76 Year
  Sex: Male

DRUGS (2)
  1. REQUIP [Suspect]
     Indication: RESTLESS LEGS SYNDROME
     Dosage: 1TAB AT NIGHT
     Route: 048
     Dates: start: 20061001
  2. OXYGEN [Concomitant]

REACTIONS (4)
  - ANKLE FRACTURE [None]
  - DYSSOMNIA [None]
  - FALL [None]
  - SUDDEN ONSET OF SLEEP [None]
